FAERS Safety Report 18592231 (Version 1)
Quarter: 2020Q4

REPORT INFORMATION
  Report Type: Spontaneous
  Country: BR (occurrence: BR)
  Receive Date: 20201208
  Receipt Date: 20201208
  Transmission Date: 20210114
  Serious: Yes (Other)
  Sender: FDA-Public Use
  Company Number: BR-ASTRAZENECA-2020SF61708

PATIENT
  Age: 23158 Day
  Sex: Female

DRUGS (1)
  1. ESOMEPRAZOLE. [Suspect]
     Active Substance: ESOMEPRAZOLE MAGNESIUM
     Indication: ABDOMINAL PAIN UPPER
     Route: 048
     Dates: start: 20201126, end: 20201127

REACTIONS (9)
  - Nausea [Recovered/Resolved]
  - Cyanosis [Recovered/Resolved]
  - Chest pain [Recovered/Resolved]
  - Heart rate increased [Recovered/Resolved]
  - Nail discolouration [Recovered/Resolved]
  - Lip discolouration [Recovered/Resolved]
  - Blood pressure decreased [Recovered/Resolved]
  - Illness [Recovered/Resolved]
  - Vomiting [Recovered/Resolved]

NARRATIVE: CASE EVENT DATE: 20201126
